FAERS Safety Report 12546640 (Version 1)
Quarter: 2016Q3

REPORT INFORMATION
  Report Type: Spontaneous
  Country: US (occurrence: US)
  Receive Date: 20160711
  Receipt Date: 20160711
  Transmission Date: 20161109
  Serious: Yes (Hospitalization, Other)
  Sender: FDA-Public Use
  Company Number: ALCN2016US004746

PATIENT
  Age: 4 Week
  Sex: Female
  Weight: 1.9 kg

DRUGS (3)
  1. TIMOLOL GFS [Suspect]
     Active Substance: TIMOLOL MALEATE
     Dosage: 1 GTT, BID
     Route: 047
  2. TIMOLOL GFS [Suspect]
     Active Substance: TIMOLOL MALEATE
     Indication: INFANTILE HAEMANGIOMA
     Dosage: 1 GTT, QD
     Route: 065
     Dates: start: 2008, end: 2013
  3. TIMOLOL GFS [Suspect]
     Active Substance: TIMOLOL MALEATE
     Dosage: 1 GTT, QD
     Route: 001

REACTIONS (5)
  - Product use issue [Recovered/Resolved]
  - Bradycardia [Recovered/Resolved]
  - Hypothermia [Recovered/Resolved]
  - Drug administered to patient of inappropriate age [Recovered/Resolved]
  - Lethargy [Recovered/Resolved]
